FAERS Safety Report 11630562 (Version 1)
Quarter: 2015Q4

REPORT INFORMATION
  Report Type: Spontaneous
  Country: US (occurrence: US)
  Receive Date: 20151014
  Receipt Date: 20151014
  Transmission Date: 20160304
  Serious: No
  Sender: FDA-Public Use
  Company Number: US-UNICHEM LABORATORIES LIMITED-UCM201506-000422

PATIENT
  Sex: Male
  Weight: 72.58 kg

DRUGS (2)
  1. SIMAVASTATIN [Concomitant]
     Indication: BLOOD CHOLESTEROL ABNORMAL
  2. HYDROCHLOROTHIAZIDE. [Suspect]
     Active Substance: HYDROCHLOROTHIAZIDE
     Indication: BLOOD PRESSURE ABNORMAL
     Route: 048
     Dates: start: 201204

REACTIONS (1)
  - Therapeutic response unexpected [Unknown]
